FAERS Safety Report 15106287 (Version 1)
Quarter: 2018Q3

REPORT INFORMATION
  Report Type: Spontaneous
  Country: US (occurrence: US)
  Receive Date: 20180704
  Receipt Date: 20180704
  Transmission Date: 20181010
  Serious: No
  Sender: FDA-Public Use
  Company Number: US-GLENMARK PHARMACEUTICALS-2017GMK029703

PATIENT

DRUGS (1)
  1. MOMETASONE FUROATE CREAM USP [Suspect]
     Active Substance: MOMETASONE FUROATE
     Indication: STOMA SITE INFLAMMATION
     Dosage: UNK (INSIDE THE STOMA)
     Route: 050
     Dates: start: 201707

REACTIONS (3)
  - Off label use [Unknown]
  - No adverse event [Unknown]
  - Product physical issue [Unknown]
